FAERS Safety Report 9447961 (Version 2)
Quarter: 2013Q4

REPORT INFORMATION
  Report Type: Spontaneous
  Country: DE (occurrence: DE)
  Receive Date: 20130808
  Receipt Date: 20131024
  Transmission Date: 20140711
  Serious: Yes (Other)
  Sender: FDA-Public Use
  Company Number: PHHY2013DE084995

PATIENT
  Age: 11 Year
  Sex: Male

DRUGS (2)
  1. METHYLPHENIDATE [Suspect]
     Indication: ATTENTION DEFICIT/HYPERACTIVITY DISORDER
     Dosage: 15-5-5-10 (UNITS NOT PROVIDED)
     Dates: start: 20130617
  2. STRATTERA [Concomitant]
     Dosage: 25 MG, UNK

REACTIONS (1)
  - Abscess [Unknown]
